FAERS Safety Report 9490433 (Version 2)
Quarter: 2013Q4

REPORT INFORMATION
  Report Type: Spontaneous
  Country: FR (occurrence: FR)
  Receive Date: 20130830
  Receipt Date: 20131218
  Transmission Date: 20140711
  Serious: Yes (Hospitalization)
  Sender: FDA-Public Use
  Company Number: FR-ROCHE-1265304

PATIENT
  Age: 66 Year
  Sex: Female

DRUGS (8)
  1. ROCEPHINE [Suspect]
     Indication: PRODUCT USED FOR UNKNOWN INDICATION
     Dosage: INJECTABLE SOLUTION POWDER
     Route: 042
     Dates: start: 20130607, end: 20130608
  2. ORELOX [Suspect]
     Indication: PRODUCT USED FOR UNKNOWN INDICATION
     Dosage: COATED TABLET
     Route: 048
     Dates: start: 20130607, end: 20130607
  3. LIPANTHYL [Concomitant]
     Dosage: 145 MG
     Route: 048
  4. COTAREG [Concomitant]
     Dosage: 160/12.5 MG
     Route: 048
  5. SERETIDE [Concomitant]
     Dosage: 50/25 UG/DOSE
     Route: 055
  6. VENTOLINE [Concomitant]
     Route: 055
  7. STILNOX [Concomitant]
     Dosage: 10 MG
     Route: 048
  8. AUGMENTIN [Concomitant]
     Route: 048

REACTIONS (3)
  - Pyrexia [Recovered/Resolved]
  - Toxic skin eruption [Recovered/Resolved]
  - Drug reaction with eosinophilia and systemic symptoms [Recovered/Resolved]
